FAERS Safety Report 8493097-3 (Version None)
Quarter: 2012Q3

REPORT INFORMATION
  Report Type: 
  Country: None (occurrence: None)
  Receive Date: 20120706
  Receipt Date: 20120628
  Transmission Date: 20120928
  Serious: Yes (Death, Hospitalization)
  Sender: FDA-Public Use
  Company Number: US-ACTELION-A-US2011-57474

PATIENT

DRUGS (1)
  1. TRACLEER [Suspect]
     Indication: PULMONARY ARTERIAL HYPERTENSION
     Dosage: UNK
     Route: 048

REACTIONS (7)
  - BLOOD DISORDER [None]
  - FATIGUE [None]
  - SICKLE CELL ANAEMIA WITH CRISIS [None]
  - PYREXIA [None]
  - VOMITING [None]
  - DEATH [None]
  - NAUSEA [None]
